FAERS Safety Report 9475618 (Version 3)
Quarter: 2013Q3

REPORT INFORMATION
  Report Type: Report from Study
  Country: VE (occurrence: VE)
  Receive Date: 20130826
  Receipt Date: 20130930
  Transmission Date: 20140515
  Serious: Yes (Other)
  Sender: FDA-Public Use
  Company Number: PHHY2013VE091274

PATIENT
  Age: 51 Year
  Sex: Female

DRUGS (5)
  1. AFINITOR [Suspect]
     Indication: BREAST CANCER
     Dosage: 10 MG, DAILY
     Route: 048
     Dates: start: 20130213, end: 20130723
  2. AFINITOR [Suspect]
     Dosage: 10 MG, DAILY
     Route: 048
     Dates: start: 201307, end: 20130821
  3. DOLAK [Concomitant]
     Dosage: 30 MG, DAILY
     Route: 048
  4. EXEMESTANE [Concomitant]
     Indication: BREAST CANCER
     Dosage: 25 MG, DAILY
     Route: 048
  5. ONDASETRON [Concomitant]
     Dosage: 8 MG, DAILY
     Route: 048

REACTIONS (17)
  - Hepatic steatosis [Unknown]
  - Phlebitis [Recovered/Resolved]
  - Pulmonary mass [Not Recovered/Not Resolved]
  - Bone pain [Recovered/Resolved]
  - Blood cholesterol increased [Recovered/Resolved]
  - Hyperglycaemia [Recovered/Resolved]
  - Blood bilirubin increased [Recovered/Resolved]
  - Blood triglycerides increased [Recovered/Resolved]
  - Transaminases increased [Recovered/Resolved]
  - Neuritis [Recovered/Resolved]
  - Blister [Recovered/Resolved]
  - Hyperhidrosis [Recovered/Resolved]
  - Headache [Recovered/Resolved]
  - Constipation [Recovered/Resolved]
  - Glossodynia [Recovered/Resolved]
  - Stomatitis [Recovered/Resolved]
  - Rash [Recovered/Resolved]
